FAERS Safety Report 9399911 (Version 2)
Quarter: 2013Q3

REPORT INFORMATION
  Report Type: Spontaneous
  Country: SA (occurrence: SA)
  Receive Date: 20130715
  Receipt Date: 20130729
  Transmission Date: 20140515
  Serious: Yes (Hospitalization, Other)
  Sender: FDA-Public Use
  Company Number: SA-JNJFOC-20130705154

PATIENT
  Age: 77 Year
  Sex: Male

DRUGS (1)
  1. REMICADE [Suspect]
     Indication: ERYTHRODERMIC PSORIASIS
     Route: 042

REACTIONS (2)
  - Portal hypertension [Not Recovered/Not Resolved]
  - Off label use [Unknown]
